FAERS Safety Report 8453697-3 (Version None)
Quarter: 2012Q2

REPORT INFORMATION
  Report Type: 
  Country: None (occurrence: None)
  Receive Date: 20120620
  Receipt Date: 20120607
  Transmission Date: 20120825
  Serious: Yes (Hospitalization)
  Sender: FDA-Public Use
  Company Number: US-ACTELION-A-US2012-65504

PATIENT

DRUGS (8)
  1. EPOPROSTENOL SODIUM [Suspect]
     Dosage: 9 NG/KG, PER MIN
     Route: 042
     Dates: start: 20100923
  2. EPOPROSTENOL SODIUM [Suspect]
     Dosage: 16.5 NG/KG, PER MIN
     Route: 042
     Dates: start: 20120413
  3. TRACLEER [Concomitant]
     Indication: PULMONARY ARTERIAL HYPERTENSION
     Dosage: UNK
     Route: 048
     Dates: start: 20100830
  4. COUMADIN [Concomitant]
  5. SPIRONOLACTONE [Suspect]
  6. EPOPROSTENOL SODIUM [Suspect]
     Dosage: 15 NG/KG, PER MIN
     Route: 042
     Dates: start: 20120413
  7. EPOPROSTENOL SODIUM [Suspect]
     Indication: PULMONARY ARTERIAL HYPERTENSION
     Dosage: 13 NG/KG, PER MIN
     Route: 042
     Dates: start: 20120413
  8. ADCIRCA [Concomitant]

REACTIONS (11)
  - PAIN IN EXTREMITY [None]
  - THROMBOSIS [None]
  - DECREASED APPETITE [None]
  - NAUSEA [None]
  - VOMITING [None]
  - DIVERTICULITIS [None]
  - VISUAL IMPAIRMENT [None]
  - HEADACHE [None]
  - DENTAL DISCOMFORT [None]
  - FLUSHING [None]
  - DIARRHOEA [None]
